FAERS Safety Report 21810577 (Version 1)
Quarter: 2023Q1

REPORT INFORMATION
  Report Type: Other
  Country: DE (occurrence: None)
  Receive Date: 20230103
  Receipt Date: 20230103
  Transmission Date: 20230417
  Serious: No
  Sender: FDA-Public Use
  Company Number: DE-ROCHE-3255477

PATIENT
  Age: 49 Year
  Sex: Female
  Weight: 76 kg

DRUGS (9)
  1. OCRELIZUMAB [Suspect]
     Active Substance: OCRELIZUMAB
     Indication: Primary progressive multiple sclerosis
     Route: 042
     Dates: start: 20190627, end: 20190710
  2. OCRELIZUMAB [Suspect]
     Active Substance: OCRELIZUMAB
     Route: 042
     Dates: start: 20200102
  3. CYSTADANE [Concomitant]
     Active Substance: BETAINE
     Indication: Hyperhomocysteinaemia
     Route: 048
  4. FLURAZEPAM MONOHYDROCHLORIDE [Concomitant]
     Active Substance: FLURAZEPAM MONOHYDROCHLORIDE
     Indication: Depressive symptom
     Dosage: DEFINITION OF THE INTERVAL: AS REQUIRED
     Route: 048
  5. FOLIC ACID [Concomitant]
     Active Substance: FOLIC ACID
     Indication: Prophylaxis
     Route: 048
  6. CHOLECALCIFEROL [Concomitant]
     Active Substance: CHOLECALCIFEROL
     Indication: Prophylaxis
     Route: 048
     Dates: start: 20211217
  7. ASPIRIN [Concomitant]
     Active Substance: ASPIRIN
     Route: 048
  8. RAMIPRIL [Concomitant]
     Active Substance: RAMIPRIL
     Route: 048
  9. SIMVASTATIN [Concomitant]
     Active Substance: SIMVASTATIN
     Route: 048

REACTIONS (1)
  - COVID-19 [Recovered/Resolved]

NARRATIVE: CASE EVENT DATE: 20220301
